FAERS Safety Report 8371167-8 (Version None)
Quarter: 2012Q2

REPORT INFORMATION
  Report Type: 
  Country: None (occurrence: None)
  Receive Date: 20120518
  Receipt Date: 20120515
  Transmission Date: 20120825
  Serious: Yes (Disabling)
  Sender: FDA-Public Use
  Company Number: US-PFIZER INC-2012063286

PATIENT
  Sex: Female

DRUGS (1)
  1. LYRICA [Suspect]
     Dosage: 100 MG, 3X/DAY
     Route: 048

REACTIONS (6)
  - MOBILITY DECREASED [None]
  - SCIATICA [None]
  - BURSITIS [None]
  - IMPAIRED WORK ABILITY [None]
  - BACK PAIN [None]
  - DENTAL CARIES [None]
